FAERS Safety Report 16779204 (Version 1)
Quarter: 2020Q3

REPORT INFORMATION
  Report Type: Spontaneous
  Country: GB (occurrence: GB)
  Receive Date: 20190906
  Receipt Date: 20190906
  Transmission Date: 20201104
  Serious: Yes (Other)
  Sender: FDA-Public Use
  Company Number: GB-TEVA-2019-GB-1102823

PATIENT
  Age: 59 Year
  Sex: Female
  Weight: 47.5 kg

DRUGS (2)
  1. ACCORD HEALTHCARE LETROZOLE [Concomitant]
  2. IBANDRONIC ACID. [Suspect]
     Active Substance: IBANDRONIC ACID
     Indication: BREAST CANCER
     Dosage: 50 MG
     Route: 048
     Dates: start: 20190205

REACTIONS (2)
  - Blindness unilateral [Recovered/Resolved with Sequelae]
  - Cataract [Recovered/Resolved]

NARRATIVE: CASE EVENT DATE: 20190619
